FAERS Safety Report 9159645 (Version 1)
Quarter: 2013Q1

REPORT INFORMATION
  Report Type: Spontaneous
  Country: US (occurrence: US)
  Receive Date: 20130313
  Receipt Date: 20130313
  Transmission Date: 20140127
  Serious: No
  Sender: FDA-Public Use
  Company Number: US-PFIZER INC-2013081754

PATIENT
  Age: 33 Year
  Sex: Female
  Weight: 155 kg

DRUGS (8)
  1. LYRICA [Suspect]
     Indication: PAIN IN EXTREMITY
     Dosage: 100 MG, AS NEEDED
     Dates: end: 2008
  2. LYRICA [Suspect]
     Indication: PAIN IN EXTREMITY
  3. SAVELLA [Concomitant]
     Dosage: 200 MG, 2X/DAY
  4. NUCYNTA ER [Concomitant]
     Dosage: 200 MG, 2X/DAY
  5. ZOLOFT [Concomitant]
     Dosage: UNK
  6. IRON [Concomitant]
     Indication: BLOOD IRON DECREASED
     Dosage: UNK
  7. IRON [Concomitant]
     Indication: MALABSORPTION
  8. IRON [Concomitant]
     Indication: BLOOD IRON DECREASED

REACTIONS (1)
  - Fibromyalgia [Unknown]
